FAERS Safety Report 13927639 (Version 1)
Quarter: 2017Q3

REPORT INFORMATION
  Report Type: Spontaneous
  Country: US (occurrence: None)
  Receive Date: 20170831
  Receipt Date: 20170831
  Transmission Date: 20171127
  Serious: Yes (Death)
  Sender: FDA-Public Use
  Company Number: None

PATIENT
  Sex: Male

DRUGS (16)
  1. NIFEDIPINE. [Concomitant]
     Active Substance: NIFEDIPINE
  2. ENSURE/FIBER [Concomitant]
  3. MAG OXIDE [Concomitant]
     Active Substance: MAGNESIUM OXIDE
  4. FUROSEMIDE. [Concomitant]
     Active Substance: FUROSEMIDE
  5. ELIQUIS [Concomitant]
     Active Substance: APIXABAN
  6. ALENDRONATE [Concomitant]
     Active Substance: ALENDRONATE SODIUM
  7. PANTOPRAZOLE [Concomitant]
     Active Substance: PANTOPRAZOLE
  8. TRAZODONE [Concomitant]
     Active Substance: TRAZODONE HYDROCHLORIDE
  9. POLYETH GLYC [Concomitant]
     Active Substance: POLYETHYLENE GLYCOLS
  10. PREDNISONE. [Concomitant]
     Active Substance: PREDNISONE
  11. IPRATROPIUM/SOL ALBUTER [Concomitant]
  12. ZETIA [Concomitant]
     Active Substance: EZETIMIBE
  13. ADCIRCA [Suspect]
     Active Substance: TADALAFIL
     Indication: PULMONARY ARTERIAL HYPERTENSION
     Route: 048
     Dates: start: 20170512
  14. SIMVASTATIN. [Concomitant]
     Active Substance: SIMVASTATIN
  15. EZETIMIBE. [Concomitant]
     Active Substance: EZETIMIBE
  16. RANITIDINE. [Concomitant]
     Active Substance: RANITIDINE

REACTIONS (1)
  - Death [None]
